FAERS Safety Report 7907813-X (Version None)
Quarter: 2011Q4

REPORT INFORMATION
  Report Type: 
  Country: None (occurrence: None)
  Receive Date: 20111110
  Receipt Date: 20111103
  Transmission Date: 20120403
  Serious: No
  Sender: FDA-Public Use
  Company Number: US-PFIZER INC-2011275316

PATIENT

DRUGS (1)
  1. ALPRAZOLAM [Suspect]
     Dosage: 1 MG, UNK
     Route: 048

REACTIONS (1)
  - DRUG EFFECT DECREASED [None]
